FAERS Safety Report 9751352 (Version 1)
Quarter: 2013Q4

REPORT INFORMATION
  Report Type: Spontaneous
  Country: US (occurrence: US)
  Receive Date: 20131212
  Receipt Date: 20131212
  Transmission Date: 20140711
  Serious: No
  Sender: FDA-Public Use
  Company Number: US-BIOGENIDEC-2013BI094141

PATIENT
  Age: 36 Year
  Sex: Male
  Weight: 83 kg

DRUGS (6)
  1. TECFIDERA [Suspect]
     Indication: MULTIPLE SCLEROSIS
     Route: 048
  2. TECFIDERA [Suspect]
     Indication: MULTIPLE SCLEROSIS
     Route: 048
  3. ADVIL [Concomitant]
  4. SERTRALINE [Concomitant]
  5. VITAMIN B 12 [Concomitant]
  6. VITAMIN D [Concomitant]

REACTIONS (4)
  - Muscle spasms [Not Recovered/Not Resolved]
  - Gastric disorder [Unknown]
  - Drug intolerance [Unknown]
  - Abdominal discomfort [Not Recovered/Not Resolved]
